FAERS Safety Report 17825119 (Version 3)
Quarter: 2021Q2

REPORT INFORMATION
  Report Type: Spontaneous
  Country: US (occurrence: US)
  Receive Date: 20200526
  Receipt Date: 20210603
  Transmission Date: 20210717
  Serious: No
  Sender: FDA-Public Use
  Company Number: US-SA-2020SA135572

PATIENT
  Age: 60 Year
  Sex: Male

DRUGS (1)
  1. DUPIXENT [Suspect]
     Active Substance: DUPILUMAB
     Indication: DERMATITIS ATOPIC
     Dosage: 300 MG, QOW
     Route: 058
     Dates: start: 202001

REACTIONS (15)
  - Eczema [Unknown]
  - Skin exfoliation [Unknown]
  - Limb discomfort [Unknown]
  - Pain in extremity [Unknown]
  - Lack of injection site rotation [Unknown]
  - Product dose omission issue [Unknown]
  - Joint stiffness [Unknown]
  - Lung disorder [Unknown]
  - Pruritus [Unknown]
  - Dry skin [Unknown]
  - Arthropod bite [Unknown]
  - Skin fissures [Unknown]
  - Sleep disorder [Unknown]
  - Platelet aggregation abnormal [Unknown]
  - Arthralgia [Unknown]

NARRATIVE: CASE EVENT DATE: 2020
